FAERS Safety Report 5092504-6 (Version None)
Quarter: 2006Q3

REPORT INFORMATION
  Report Type: 
  Country: None (occurrence: None)
  Receive Date: 20060828
  Receipt Date: 20060816
  Transmission Date: 20061208
  Serious: Yes (Other)
  Sender: FDA-Public Use
  Company Number: 2006100346

PATIENT
  Age: 40 Year
  Sex: Female
  Weight: 54.4316 kg

DRUGS (10)
  1. ZOLOFT [Suspect]
     Indication: DEPRESSION
     Dosage: UNK (3 IN 1 D);
     Dates: start: 20000101, end: 20010101
  2. SINEQUAN [Suspect]
     Indication: DEPRESSION
     Dosage: 25 MG (25 MG, 1 IN 1 D);
     Dates: start: 20000101, end: 20010101
  3. XANAX [Suspect]
     Indication: DRUG USE FOR UNKNOWN INDICATION
  4. ALL OTHER THERAPEUTIC PRODUCTS (ALL OTHER THERAPEUTIC PRODUCTS) [Suspect]
     Indication: HORMONE THERAPY
  5. HYDROCODONE BITARTRATE [Concomitant]
  6. PLAVIX [Concomitant]
  7. POTASSIUM [Concomitant]
  8. LASIX [Concomitant]
  9. DILANTIN [Concomitant]
  10. SOMA [Concomitant]

REACTIONS (7)
  - ANXIETY [None]
  - DIARRHOEA [None]
  - DRUG EXPOSURE DURING PREGNANCY [None]
  - DYSKINESIA [None]
  - MEMORY IMPAIRMENT [None]
  - OVARIAN CANCER [None]
  - TREMOR [None]
